FAERS Safety Report 12097405 (Version 1)
Quarter: 2016Q1

REPORT INFORMATION
  Report Type: Other
  Country: US (occurrence: US)
  Receive Date: 20160221
  Receipt Date: 20160221
  Transmission Date: 20160526
  Serious: No
  Sender: FDA-Public Use
  Company Number: US-ACORDA-ACO_110951_2015

PATIENT
  Sex: Female

DRUGS (2)
  1. DETROL [Concomitant]
     Active Substance: TOLTERODINE TARTRATE
  2. AMPYRA [Suspect]
     Active Substance: DALFAMPRIDINE
     Indication: MULTIPLE SCLEROSIS
     Dosage: 10 MG, BID
     Route: 048
     Dates: end: 201501

REACTIONS (4)
  - Asthenia [Unknown]
  - Gait disturbance [Unknown]
  - Dysstasia [Unknown]
  - Therapy cessation [Unknown]
